FAERS Safety Report 20379040 (Version 1)
Quarter: 2022Q1

REPORT INFORMATION
  Report Type: Spontaneous
  Country: US (occurrence: None)
  Receive Date: 20220126
  Receipt Date: 20220126
  Transmission Date: 20220423
  Serious: No
  Sender: FDA-Public Use
  Company Number: None

PATIENT
  Age: 62 Year
  Sex: Male

DRUGS (1)
  1. OTEZLA [Suspect]
     Active Substance: APREMILAST
     Indication: Psoriatic arthropathy
     Dosage: FREQUENCY : TWICE A DAY;?
     Route: 048
     Dates: start: 201807

REACTIONS (7)
  - Movement disorder [None]
  - Hyporeflexia [None]
  - Arthralgia [None]
  - Arthropathy [None]
  - Therapeutic product effect decreased [None]
  - Drug tolerance [None]
  - Pain [None]

NARRATIVE: CASE EVENT DATE: 20211101
